FAERS Safety Report 21666934 (Version 6)
Quarter: 2023Q1

REPORT INFORMATION
  Report Type: Spontaneous
  Country: CA (occurrence: CA)
  Receive Date: 20221201
  Receipt Date: 20230330
  Transmission Date: 20230418
  Serious: Yes (Other)
  Sender: FDA-Public Use
  Company Number: CA-CELLTRION INC.-2022CA018972

PATIENT

DRUGS (13)
  1. INFLECTRA [Suspect]
     Active Substance: INFLIXIMAB-DYYB
     Indication: Colitis ulcerative
     Dosage: 5 MG/KG, WEEK 0 INDUCTION AT HOSPITAL
     Route: 042
     Dates: start: 20220619, end: 20220619
  2. INFLECTRA [Suspect]
     Active Substance: INFLIXIMAB-DYYB
     Dosage: 5 MG/KG RE-INDUCTION WEEK 0,2,6 THEN EVERY 8 WEEKS
     Route: 042
     Dates: start: 20220816, end: 20221122
  3. INFLECTRA [Suspect]
     Active Substance: INFLIXIMAB-DYYB
     Dosage: 5 MG/KG RE-INDUCTION WEEK 0,2,6 THEN EVERY 8 WEEKS
     Route: 042
     Dates: start: 20220927
  4. INFLECTRA [Suspect]
     Active Substance: INFLIXIMAB-DYYB
     Dosage: 5 MG/KG RE-INDUCTION WEEK 0,2,6 THEN EVERY 8 WEEKS
     Route: 042
     Dates: start: 20221122
  5. INFLECTRA [Suspect]
     Active Substance: INFLIXIMAB-DYYB
     Dosage: 5 MG/KG RE-INDUCTION WEEK 0,2,6 THEN EVERY 8 WEEKS
     Route: 042
     Dates: start: 20221122
  6. INFLECTRA [Suspect]
     Active Substance: INFLIXIMAB-DYYB
     Dosage: 5 MG/KG RE-INDUCTION WEEK 0,2,6 THEN EVERY 8 WEEKS
     Route: 042
     Dates: start: 20221122
  7. INFLECTRA [Suspect]
     Active Substance: INFLIXIMAB-DYYB
     Dosage: 5 MG/KG RE-INDUCTION WEEK 0,2,6 THEN EVERY 8 WEEKS
     Route: 042
     Dates: start: 20221122
  8. INFLECTRA [Suspect]
     Active Substance: INFLIXIMAB-DYYB
     Dosage: 5 MG/KG RE-INDUCTION WEEK 0,2,6 THEN EVERY 8 WEEKS
     Route: 042
     Dates: start: 20221122
  9. INFLECTRA [Suspect]
     Active Substance: INFLIXIMAB-DYYB
     Dosage: 5 MG/KG, RE INDUCTION WEEKS 0, 2, 6 THEN Q 4 WEEKS
     Route: 042
     Dates: start: 20221214
  10. INFLECTRA [Suspect]
     Active Substance: INFLIXIMAB-DYYB
     Dosage: 5 MG/KG, RE INDUCTION WEEKS 0, 2, 6 THEN Q 4 WEEKS
     Route: 042
     Dates: start: 20230125
  11. INFLECTRA [Suspect]
     Active Substance: INFLIXIMAB-DYYB
     Dosage: 330MG (5MG/KG), EVERY 4 WEEKS
     Route: 042
     Dates: start: 20230222
  12. INFLECTRA [Suspect]
     Active Substance: INFLIXIMAB-DYYB
     Dosage: 335MG (5MG/KG), EVERY 4 WEEKS
     Route: 042
     Dates: start: 20230322
  13. PREDNISONE [Concomitant]
     Active Substance: PREDNISONE
     Dosage: 30 MG, 1X/DAY
     Route: 048

REACTIONS (6)
  - Condition aggravated [Not Recovered/Not Resolved]
  - Stress [Unknown]
  - Emotional distress [Unknown]
  - Insomnia [Unknown]
  - Depression [Unknown]
  - Off label use [Unknown]

NARRATIVE: CASE EVENT DATE: 20220101
